FAERS Safety Report 19488531 (Version 2)
Quarter: 2021Q3

REPORT INFORMATION
  Report Type: Spontaneous
  Country: US (occurrence: US)
  Receive Date: 20210702
  Receipt Date: 20210727
  Transmission Date: 20211014
  Serious: Yes (Hospitalization, Other)
  Sender: FDA-Public Use
  Company Number: US-BAYER-2021-169062

PATIENT
  Age: 61 Year
  Sex: Female

DRUGS (5)
  1. BUPIVACAINE. [Concomitant]
     Active Substance: BUPIVACAINE
     Indication: ARTHROPATHY
  2. ASPIRIN (CARDIO) [Suspect]
     Active Substance: ASPIRIN
     Indication: ANTIPLATELET THERAPY
  3. TRIAMCINOLONE [Concomitant]
     Active Substance: TRIAMCINOLONE
     Indication: ARTHROPATHY
     Dosage: 40 MG/ML
  4. ASPIRIN (CARDIO) [Suspect]
     Active Substance: ASPIRIN
     Indication: ATRIAL FIBRILLATION
  5. WARFARIN [Suspect]
     Active Substance: WARFARIN
     Indication: ATRIAL FIBRILLATION

REACTIONS (7)
  - Muscular weakness [Recovered/Resolved]
  - Hypoaesthesia [Recovered/Resolved]
  - Labelled drug-drug interaction medication error [Unknown]
  - Haematoma muscle [Recovered/Resolved]
  - Urinary retention [Recovered/Resolved]
  - Peripheral ischaemia [Recovered/Resolved]
  - Musculoskeletal pain [Recovered/Resolved]
